FAERS Safety Report 6466369-1 (Version None)
Quarter: 2009Q4

REPORT INFORMATION
  Report Type: 
  Country: None (occurrence: None)
  Receive Date: 20091118
  Receipt Date: 20090723
  Transmission Date: 20100525
  Serious: Yes (Hospitalization)
  Sender: FDA-Public Use
  Company Number: 2009BI019549

PATIENT
  Age: 47 Year
  Sex: Female

DRUGS (20)
  1. TYSABRI [Suspect]
     Indication: MULTIPLE SCLEROSIS
     Dosage: IV
     Route: 042
     Dates: start: 20061121, end: 20090616
  2. COUMADIN [Concomitant]
  3. RITALIN [Concomitant]
  4. ATENOLOL [Concomitant]
  5. PROTONIX [Concomitant]
  6. PROVIGIL [Concomitant]
  7. FLUOXETINE [Concomitant]
  8. LYRICA [Concomitant]
  9. TOPAMAX [Concomitant]
  10. MIRTAZAPINE [Concomitant]
  11. AMBIEN CR [Concomitant]
  12. PROMETHAZINE [Concomitant]
  13. XANAX [Concomitant]
  14. MIDRIN [Concomitant]
  15. DARVOCET [Concomitant]
  16. ARICEPT [Concomitant]
  17. MEDROXYPROGESTERONE ACETATE [Concomitant]
  18. BETASERON [Concomitant]
  19. AVONEX [Concomitant]
  20. COPAXONE [Concomitant]

REACTIONS (1)
  - MULTIPLE SCLEROSIS RELAPSE [None]
